FAERS Safety Report 7381363-4 (Version None)
Quarter: 2011Q1

REPORT INFORMATION
  Report Type: 
  Country: None (occurrence: None)
  Receive Date: 20110321
  Receipt Date: 20110307
  Transmission Date: 20110831
  Serious: Yes (Hospitalization, Other)
  Sender: FDA-Public Use
  Company Number: 1000019087

PATIENT
  Age: 82 Year
  Sex: Female

DRUGS (10)
  1. WARFARIN SODIUM [Concomitant]
  2. RIVASTIGMINE TARTRATE [Concomitant]
  3. LORAZEPAM [Concomitant]
  4. QUETIAPINE FUMARATE [Concomitant]
  5. STRONTIUM RANELATE (STRONTIUM RANELATE) [Concomitant]
  6. ESOMEPRAZOLE (ESOMEPRAZOLE) [Concomitant]
  7. MEMANTINE HCL [Suspect]
     Indication: DEMENTIA
     Dosage: 10, 15, 20  MG (10 MG, 1 IN 1 D), ORAL
     Route: 048
     Dates: start: 20110125
  8. MEMANTINE HCL [Suspect]
     Indication: DEMENTIA
     Dosage: 10, 15, 20  MG (10 MG, 1 IN 1 D), ORAL
     Route: 048
     Dates: start: 20110118, end: 20110124
  9. MEMANTINE HCL [Suspect]
     Indication: DEMENTIA
     Dosage: 10, 15, 20  MG (10 MG, 1 IN 1 D), ORAL
     Route: 048
     Dates: start: 20110111, end: 20110117
  10. BISOPROLOL (BISOPROLOL) [Concomitant]

REACTIONS (4)
  - MYALGIA [None]
  - SCREAMING [None]
  - IMMOBILE [None]
  - MOVEMENT DISORDER [None]
